FAERS Safety Report 8917742 (Version 2)
Quarter: 2013Q2

REPORT INFORMATION
  Report Type: Spontaneous
  Country: DE (occurrence: DE)
  Receive Date: 20121120
  Receipt Date: 20130504
  Transmission Date: 20140414
  Serious: Yes (Death)
  Sender: FDA-Public Use
  Company Number: DE-MYLANLABS-2012S1023220

PATIENT
  Age: 79 Year
  Sex: Female
  Weight: 52 kg

DRUGS (5)
  1. METFORMIN [Suspect]
     Indication: DIABETES MELLITUS
     Dosage: DAILY DOSE: 2000 MG MILLGRAM(S) EVERY DAYS
  2. PRADAXA [Suspect]
     Indication: PERIPHERAL ARTERIAL OCCLUSIVE DISEASE
     Dosage: DAILY DOSE: 300 MG MILLGRAM(S) EVERY DAYS
     Route: 048
     Dates: start: 20120820
  3. CLOPIDOGREL [Concomitant]
     Indication: PERIPHERAL ARTERIAL OCCLUSIVE DISEASE
  4. OXYGESIC [Concomitant]
     Indication: ANALGESIC THERAPY
     Dates: start: 20120903, end: 20120904
  5. NOVALGIN [Concomitant]
     Indication: ANALGESIC THERAPY
     Dates: start: 20120902, end: 20120904

REACTIONS (4)
  - Lactic acidosis [Fatal]
  - Multi-organ failure [Fatal]
  - Hypotension [Fatal]
  - Somnolence [Fatal]
